FAERS Safety Report 8849210 (Version 1)
Quarter: 2012Q4

REPORT INFORMATION
  Report Type: 
  Country: GB (occurrence: GB)
  Receive Date: 20121019
  Receipt Date: 20121019
  Transmission Date: 20130627
  Serious: Yes (Other)
  Sender: FDA-Public Use
  Company Number: GB-ELI_LILLY_AND_COMPANY-GB201210002687

PATIENT

DRUGS (1)
  1. FLUOXETINE [Suspect]
     Dosage: 20 mg, UNK
     Route: 064

REACTIONS (3)
  - Nervous system disorder [Not Recovered/Not Resolved]
  - Dysphagia [Not Recovered/Not Resolved]
  - Foetal exposure during pregnancy [Recovered/Resolved]
